FAERS Safety Report 8767181 (Version 2)
Quarter: 2012Q4

REPORT INFORMATION
  Report Type: 
  Country: US (occurrence: US)
  Receive Date: 20120904
  Receipt Date: 20121112
  Transmission Date: 20130627
  Serious: Yes (Other)
  Sender: FDA-Public Use
  Company Number: US-BAYER-2012-089018

PATIENT
  Age: 23 Year
  Sex: Female
  Weight: 86.17 kg

DRUGS (5)
  1. YASMIN [Suspect]
     Dosage: UNK
     Dates: start: 200405, end: 2006
  2. LEXAPRO [Concomitant]
     Dosage: 10 mg, daily
     Dates: start: 20041001
  3. REGLAN [Concomitant]
  4. ACIPHEX [Concomitant]
  5. ALLEGRA-D [Concomitant]

REACTIONS (9)
  - Gallbladder injury [None]
  - Biliary dyskinesia [None]
  - Scar [None]
  - Injury [None]
  - Pain [None]
  - General physical health deterioration [None]
  - Emotional distress [None]
  - Pain [None]
  - Anxiety [None]
